FAERS Safety Report 14363591 (Version 1)
Quarter: 2018Q1

REPORT INFORMATION
  Report Type: Spontaneous
  Country: CN (occurrence: CN)
  Receive Date: 20180108
  Receipt Date: 20180108
  Transmission Date: 20180509
  Serious: Yes (Other)
  Sender: FDA-Public Use
  Company Number: CN-EISAI MEDICAL RESEARCH-EC-2018-034871

PATIENT
  Age: 63 Year
  Sex: Male
  Weight: 76 kg

DRUGS (4)
  1. POLAPREZINE [Suspect]
     Active Substance: POLAPREZINC
     Indication: GASTROINTESTINAL DISORDER
     Dosage: 150 MG
     Route: 048
     Dates: start: 20170708, end: 20170724
  2. MOSAPRIDE CITRATE [Concomitant]
     Active Substance: MOSAPRIDE CITRATE
     Indication: GASTROINTESTINAL DISORDER
     Dosage: 15 MG
     Route: 048
     Dates: start: 20170703, end: 20170724
  3. L-GLUTAMINE AND SODIUM GUALENATE [Concomitant]
     Indication: GASTROINTESTINAL DISORDER
     Dosage: 2 G
     Route: 048
     Dates: start: 20170703, end: 20170707
  4. PARIET [Suspect]
     Active Substance: RABEPRAZOLE SODIUM
     Indication: GASTROINTESTINAL DISORDER
     Route: 048
     Dates: start: 20170707, end: 20170724

REACTIONS (3)
  - Aspartate aminotransferase increased [None]
  - Alanine aminotransferase increased [None]
  - Drug-induced liver injury [Recovered/Resolved]

NARRATIVE: CASE EVENT DATE: 20170724
